FAERS Safety Report 11072048 (Version 1)
Quarter: 2015Q2

REPORT INFORMATION
  Report Type: Spontaneous
  Country: US (occurrence: None)
  Receive Date: 20150424
  Receipt Date: 20150424
  Transmission Date: 20150821
  Serious: Yes (Hospitalization)
  Sender: FDA-Public Use
  Company Number: US-H14001-15-00588

PATIENT
  Age: 55 Year
  Sex: Female
  Weight: 65.32 kg

DRUGS (4)
  1. VITAMINS (KAPSOVIT) (UNKNOWN) (ERGOCALCIFEROL, ASCORBIC ACID, THIAMINE HYDROHCLORIDE, RETINOL, RIBOFLAVIN, NICOTINAMIDE) [Concomitant]
  2. CAPTOPRIL (CAPTOPRIL) UNKNOWN [Suspect]
     Active Substance: CAPTOPRIL
     Indication: HYPERTENSION
     Route: 048
  3. CAPTOPRIL. [Suspect]
     Active Substance: CAPTOPRIL
     Indication: HYPERTENSION
     Route: 048
  4. DIURETICS [Concomitant]
     Active Substance: UNSPECIFIED INGREDIENT

REACTIONS (11)
  - Weight decreased [None]
  - Fungal infection [None]
  - Stress [None]
  - Lip oedema [None]
  - Lip disorder [None]
  - Anxiety [None]
  - Lip pain [None]
  - Lip pruritus [None]
  - Rash [None]
  - Cough [None]
  - Staphylococcal infection [None]

NARRATIVE: CASE EVENT DATE: 201502
